FAERS Safety Report 7665676-4 (Version None)
Quarter: 2011Q3

REPORT INFORMATION
  Report Type: 
  Country: None (occurrence: None)
  Receive Date: 20110806
  Receipt Date: 20110412
  Transmission Date: 20111222
  Serious: No
  Sender: FDA-Public Use
  Company Number: US-ABBOTT-11P-163-0718957-00

PATIENT
  Sex: Female
  Weight: 46.308 kg

DRUGS (5)
  1. NIASPAN [Suspect]
     Dates: start: 20091001, end: 20101001
  2. METOPROLOL TARTRATE [Concomitant]
     Indication: HYPERTENSION
  3. ASPIRIN [Concomitant]
     Indication: THROMBOSIS PROPHYLAXIS
  4. NIASPAN [Suspect]
     Indication: ARTERIOSCLEROSIS
     Dates: start: 20101001
  5. BENICAR [Concomitant]
     Indication: HYPERTENSION

REACTIONS (2)
  - COELIAC DISEASE [None]
  - DIARRHOEA [None]
